FAERS Safety Report 6688345-6 (Version None)
Quarter: 2010Q2

REPORT INFORMATION
  Report Type: 
  Country: None (occurrence: None)
  Receive Date: 20100420
  Receipt Date: 20100416
  Transmission Date: 20101027
  Serious: Yes (Death)
  Sender: FDA-Public Use
  Company Number: MX-B.I. PHARMACEUTICALS,INC./RIDGEFIELD-2010-MX-00069MX

PATIENT
  Age: 46 Year
  Sex: Female

DRUGS (4)
  1. APTIVUS [Suspect]
     Indication: HIV INFECTION
     Dosage: 1000 MG
     Route: 048
     Dates: end: 20090101
  2. RITONAVIR [Concomitant]
     Indication: HIV INFECTION
  3. KIVEXA [Concomitant]
     Indication: HIV INFECTION
     Dosage: NOT REPORTED
  4. TRUVADA [Concomitant]
     Indication: HIV INFECTION
     Dosage: NOT REPORTED

REACTIONS (5)
  - BILIRUBIN CONJUGATED INCREASED [None]
  - BLOOD BILIRUBIN UNCONJUGATED INCREASED [None]
  - CACHEXIA [None]
  - DIARRHOEA [None]
  - MALNUTRITION [None]
